FAERS Safety Report 9020068 (Version 1)
Quarter: 2013Q1

REPORT INFORMATION
  Report Type: Spontaneous
  Country: US (occurrence: US)
  Receive Date: 20130119
  Receipt Date: 20130119
  Transmission Date: 20140127
  Serious: No
  Sender: FDA-Public Use
  Company Number: US-ALLERGAN-1211014US

PATIENT
  Age: 66 Year
  Sex: Female

DRUGS (5)
  1. BOTOX? [Suspect]
     Indication: MIGRAINE
     Dosage: UNK UNK, SINGLE
     Route: 030
     Dates: start: 20120628, end: 20120628
  2. AMITRIPTYLINE [Concomitant]
     Indication: DEPRESSION
  3. VENLAFAXINE [Concomitant]
     Indication: DEPRESSION
  4. LAMOTRIGINE [Concomitant]
     Indication: CONVULSION
     Dosage: UNK
  5. LIPITOR [Concomitant]
     Indication: BLOOD CHOLESTEROL INCREASED
     Dosage: UNK UNK, SINGLE
     Route: 030

REACTIONS (4)
  - Neck pain [Not Recovered/Not Resolved]
  - Migraine [Not Recovered/Not Resolved]
  - Nausea [Not Recovered/Not Resolved]
  - Headache [Not Recovered/Not Resolved]
